FAERS Safety Report 8344159-2 (Version None)
Quarter: 2012Q2

REPORT INFORMATION
  Report Type: 
  Country: None (occurrence: None)
  Receive Date: 20120508
  Receipt Date: 20120501
  Transmission Date: 20120825
  Serious: Yes (Other)
  Sender: FDA-Public Use
  Company Number: CA-UCBSA-056551

PATIENT
  Sex: Female

DRUGS (6)
  1. CIMZIA [Suspect]
     Indication: RHEUMATOID ARTHRITIS
     Route: 058
     Dates: start: 20120416, end: 20120423
  2. PRILOSEC [Concomitant]
  3. ESTRADERM [Concomitant]
  4. CIMZIA [Suspect]
     Route: 058
     Dates: start: 20120319, end: 20120416
  5. HYZAAR [Concomitant]
  6. IMOVANE [Concomitant]

REACTIONS (2)
  - STAPHYLOCOCCAL INFECTION [None]
  - ABSCESS [None]
